FAERS Safety Report 8115178-6 (Version None)
Quarter: 2012Q1

REPORT INFORMATION
  Report Type: 
  Country: None (occurrence: None)
  Receive Date: 20120123
  Receipt Date: 20120117
  Transmission Date: 20120608
  Serious: Yes (Hospitalization, Other)
  Sender: FDA-Public Use
  Company Number: 2011028871

PATIENT
  Age: 53 Year
  Sex: Female
  Weight: 83.4619 kg

DRUGS (39)
  1. HIZENTRA [Suspect]
     Indication: IMMUNODEFICIENCY COMMON VARIABLE
     Dosage: (1 GM 5 ML VIAL; 4 SITES OVER 1 HOUR AND 28 MINUTES SUBCUTANEOUS)
     Route: 058
  2. HIZENTRA [Suspect]
     Indication: IMMUNODEFICIENCY COMMON VARIABLE
     Dosage: (1 GM 5 ML VIAL SUBCUTANEOUS)
     Route: 058
     Dates: start: 20101218
  3. HIZENTRA [Suspect]
     Indication: IMMUNODEFICIENCY COMMON VARIABLE
     Dosage: (1 GM 5 ML VIAL SUBCUTANEOUS)
     Route: 058
     Dates: start: 20111026
  4. OXYCONTIN [Concomitant]
  5. TYLENOL ARTHRITIS (PARACETAMOL) [Concomitant]
  6. OXYGEN (OXYGEN) [Concomitant]
  7. HIZENTRA [Suspect]
     Indication: IMMUNODEFICIENCY COMMON VARIABLE
     Dosage: (9 G 1X/WEEK, 9 G (45 ML) IN 2-4 SITES OVER 1 HOUR SUBCUTANEOUS)
     Route: 058
     Dates: start: 20101218
  8. HIZENTRA [Suspect]
     Indication: IMMUNODEFICIENCY COMMON VARIABLE
     Dosage: (1 GM 5 ML VIAL; 45 ML IN 4 SITES WITH 600 ML/HR OVER 2 HOURS SUBCUTANEOUS), (1 GM 5 ML VIAL IN 2-4
     Route: 058
     Dates: start: 20101208
  9. HIZENTRA [Suspect]
     Indication: IMMUNODEFICIENCY COMMON VARIABLE
     Dosage: (1 GM 5 ML VIAL; 45 ML IN 4 SITES WITH 600 ML/HR OVER 2 HOURS SUBCUTANEOUS), (1 GM 5 ML VIAL IN 2-4
     Route: 058
     Dates: start: 20111026
  10. SYNTHROID [Concomitant]
  11. VITAMIN D [Concomitant]
  12. PREDNISONE TAB [Concomitant]
  13. HIZENTRA [Suspect]
     Indication: IMMUNODEFICIENCY COMMON VARIABLE
     Dosage: SUBCUTANEOUS
     Route: 058
  14. HIZENTRA [Suspect]
     Indication: IMMUNODEFICIENCY COMMON VARIABLE
     Dosage: (4 GM 20 ML VIAL IN 2-4 SITES OVER 2.5 HOURS SUBCUTANEOUS)
     Dates: start: 20111026
  15. LOTEMAX [Concomitant]
  16. BACTROBAN [Concomitant]
  17. HIZENTRA [Suspect]
     Indication: IMMUNODEFICIENCY COMMON VARIABLE
     Dosage: (4 GM 20 ML VIAL; 45 ML IN 4 SITES WITH 600 ML/HR OVER 2 HOURS SUBCUTANEOUS)
     Route: 058
     Dates: start: 20101208
  18. PROBIOTIC (LACTOBACILLUS ACIDOPHILUS) [Concomitant]
  19. ZOFRAN [Concomitant]
  20. ESTRING [Concomitant]
  21. LIDODERM [Concomitant]
  22. TYLENOL W/ CODEINE NO. 3 [Concomitant]
  23. LEXAPRO [Concomitant]
  24. HIZENTRA [Suspect]
     Indication: IMMUNODEFICIENCY COMMON VARIABLE
     Dates: start: 20110903, end: 20110903
  25. HIZENTRA [Suspect]
     Indication: IMMUNODEFICIENCY COMMON VARIABLE
     Dates: start: 20110903, end: 20110903
  26. HIZENTRA [Suspect]
     Indication: IMMUNODEFICIENCY COMMON VARIABLE
     Dosage: (4 GM 20 ML VIAL SUBCUTANEOUS)
     Route: 058
     Dates: start: 20101218
  27. HIZENTRA [Suspect]
     Indication: IMMUNODEFICIENCY COMMON VARIABLE
     Dosage: (1 GM 5 ML VIAL SUBCUTANEOUS)
     Route: 058
  28. HIZENTRA [Suspect]
     Indication: IMMUNODEFICIENCY COMMON VARIABLE
     Dosage: (4 GM 20 ML VIAL SUBCUTANEOUS)
     Route: 058
     Dates: start: 20101001
  29. HIZENTRA [Suspect]
     Indication: IMMUNODEFICIENCY COMMON VARIABLE
     Dosage: (4 GM 20 ML VIAL IN 2-4 SITES OVER 2.5 HOURS SUBCUTANEOUS)
     Route: 058
     Dates: start: 20111026
  30. HIZENTRA [Suspect]
     Indication: IMMUNODEFICIENCY COMMON VARIABLE
     Dosage: (4 GM 20 ML VIAL; 4 SITES OVER 1 HOUR AND 28 MINUTES SUBCUTANEOUS)
     Route: 058
  31. HIZENTRA [Suspect]
     Indication: IMMUNODEFICIENCY COMMON VARIABLE
     Dosage: (1 GM 5 ML VIAL; 2-4 SITES IN 1 HOUR SUBCUTANEOUS), (1 GM 5 ML VIAL SUBCUTANEOUS)
     Route: 058
     Dates: start: 20101218
  32. HIZENTRA [Suspect]
     Indication: IMMUNODEFICIENCY COMMON VARIABLE
     Dosage: (1 GM 5 ML VIAL; 2-4 SITES IN 1 HOUR SUBCUTANEOUS), (1 GM 5 ML VIAL SUBCUTANEOUS)
     Route: 058
     Dates: start: 20101001
  33. HIZENTRA [Suspect]
     Indication: IMMUNODEFICIENCY COMMON VARIABLE
     Dosage: (4 GM 20 ML VIAL SUBCUTANEOUS)
     Route: 058
     Dates: start: 20101218
  34. VICODIN [Concomitant]
  35. LORATADINE [Concomitant]
  36. CLONAZEPAM [Concomitant]
  37. FLORINEF [Concomitant]
  38. RESTASIS [Concomitant]
  39. VIVELLE-DOT [Concomitant]

REACTIONS (19)
  - SKIN LESION EXCISION [None]
  - SINUS CONGESTION [None]
  - ORAL CANDIDIASIS [None]
  - OTITIS MEDIA [None]
  - FATIGUE [None]
  - NAUSEA [None]
  - VOMITING [None]
  - OTITIS EXTERNA [None]
  - INTERSTITIAL LUNG DISEASE [None]
  - ORAL INFECTION [None]
  - INFLUENZA LIKE ILLNESS [None]
  - EAR INFECTION FUNGAL [None]
  - IMPAIRED HEALING [None]
  - POSTOPERATIVE WOUND COMPLICATION [None]
  - SINUSITIS [None]
  - HYPERHIDROSIS [None]
  - GLOSSODYNIA [None]
  - HERPES SIMPLEX [None]
  - RESPIRATORY TRACT INFECTION [None]
